FAERS Safety Report 24689215 (Version 1)
Quarter: 2024Q4

REPORT INFORMATION
  Report Type: Report from Study
  Country: CN (occurrence: CN)
  Receive Date: 20241203
  Receipt Date: 20241203
  Transmission Date: 20250114
  Serious: Yes (Other)
  Sender: ROCHE
  Company Number: CN-ROCHE-10000143424

PATIENT

DRUGS (13)
  1. TRASTUZUMAB [Suspect]
     Active Substance: TRASTUZUMAB
     Indication: Colorectal cancer
     Route: 065
  2. FRUQUINTINIB [Suspect]
     Active Substance: FRUQUINTINIB
     Indication: Colorectal cancer
     Route: 065
  3. REGORAFENIB [Suspect]
     Active Substance: REGORAFENIB
     Indication: Colorectal cancer
     Route: 065
  4. CETUXIMAB [Suspect]
     Active Substance: CETUXIMAB
     Indication: Colorectal cancer
     Route: 065
  5. IRINOTECAN [Suspect]
     Active Substance: IRINOTECAN
     Indication: Colorectal cancer
     Route: 065
  6. DABRAFENIB [Suspect]
     Active Substance: DABRAFENIB
     Indication: Colorectal cancer
     Route: 065
  7. TRAMETINIB [Suspect]
     Active Substance: TRAMETINIB
     Indication: Colorectal cancer
     Route: 065
  8. RIVOCERANIB [Suspect]
     Active Substance: RIVOCERANIB
     Indication: Colorectal cancer
     Route: 065
  9. CATEQUENTINIB [Suspect]
     Active Substance: CATEQUENTINIB
     Indication: Colorectal cancer
     Route: 065
  10. RALTITREXED [Suspect]
     Active Substance: RALTITREXED
     Indication: Colorectal cancer
     Route: 065
  11. ENVAFOLIMAB [Suspect]
     Active Substance: ENVAFOLIMAB
     Indication: Colorectal cancer
     Route: 065
  12. LOBAPLATIN [Suspect]
     Active Substance: LOBAPLATIN
     Indication: Colorectal cancer
     Route: 065
  13. TIPIRACIL HYDROCHLORIDE\TRIFLURIDINE [Suspect]
     Active Substance: TIPIRACIL HYDROCHLORIDE\TRIFLURIDINE
     Indication: Colorectal cancer
     Route: 065

REACTIONS (21)
  - Neutropenia [Unknown]
  - Leukopenia [Unknown]
  - Fatigue [Unknown]
  - Thrombocytopenia [Unknown]
  - Palmar-plantar erythrodysaesthesia syndrome [Unknown]
  - Nausea [Unknown]
  - Transaminases increased [Unknown]
  - Blood bilirubin increased [Unknown]
  - Vomiting [Unknown]
  - Asthenia [Unknown]
  - Haemoglobin decreased [Unknown]
  - Proteinuria [Unknown]
  - Hypertension [Unknown]
  - Haemoglobin decreased [Unknown]
  - Blood bilirubin increased [Unknown]
  - Hypothyroidism [Unknown]
  - Myocardial necrosis marker increased [Unknown]
  - Rash [Unknown]
  - Cytokine release syndrome [Unknown]
  - Immune effector cell-associated neurotoxicity syndrome [Unknown]
  - Pneumonia [Unknown]
